FAERS Safety Report 8053829-5 (Version None)
Quarter: 2011Q4

REPORT INFORMATION
  Report Type: 
  Country: None (occurrence: None)
  Receive Date: 20111213
  Receipt Date: 20110923
  Transmission Date: 20120403
  Serious: No
  Sender: FDA-Public Use
  Company Number: 2011SP045248

PATIENT
  Age: 15 Year
  Sex: Female

DRUGS (3)
  1. ZOLOFT [Concomitant]
  2. SAPHRIS [Suspect]
     Indication: OBSESSIVE-COMPULSIVE DISORDER
     Dosage: 5 MG; QD; SL
     Route: 060
     Dates: start: 20110101
  3. SAPHRIS [Suspect]
     Indication: ANXIETY
     Dosage: 5 MG; QD; SL
     Route: 060
     Dates: start: 20110101

REACTIONS (5)
  - RETCHING [None]
  - INAPPROPRIATE SCHEDULE OF DRUG ADMINISTRATION [None]
  - UNDERDOSE [None]
  - DRUG ADMINISTERED TO PATIENT OF INAPPROPRIATE AGE [None]
  - VOMITING [None]
